FAERS Safety Report 6040010-4 (Version None)
Quarter: 2009Q1

REPORT INFORMATION
  Report Type: 
  Country: None (occurrence: None)
  Receive Date: 20090116
  Receipt Date: 20080131
  Transmission Date: 20090719
  Serious: No
  Sender: FDA-Public Use
  Company Number: US-BRISTOL-MYERS SQUIBB COMPANY-13983457

PATIENT
  Age: 86 Year
  Sex: Female
  Weight: 66 kg

DRUGS (4)
  1. ABILIFY [Suspect]
     Indication: ANXIETY
     Route: 048
     Dates: start: 20071001
  2. CYMBALTA [Suspect]
     Dates: start: 20071001
  3. LUNESTA [Concomitant]
  4. COUMADIN [Concomitant]

REACTIONS (2)
  - OEDEMA PERIPHERAL [None]
  - WEIGHT INCREASED [None]
